FAERS Safety Report 8250976-X (Version None)
Quarter: 2012Q1

REPORT INFORMATION
  Report Type: 
  Country: None (occurrence: None)
  Receive Date: 20120319
  Receipt Date: 20090707
  Transmission Date: 20120608
  Serious: Yes (Hospitalization)
  Sender: FDA-Public Use
  Company Number: PHEH2009US07194

PATIENT
  Age: 65 Year
  Sex: Female

DRUGS (4)
  1. AZOR (OLMESARTAN MEDOXOMIL/ AMLODIPINE BESILATE) (AMLODIPINE BESILATE, [Concomitant]
  2. ACTOS /CAN/ (PIOGLITAZONE PIOGLITAZONE HYDROCHLORIDE) [Concomitant]
  3. HYDROCHLOROTHIAZIDE [Concomitant]
  4. TEKTURNA [Suspect]
     Indication: HYPERTENSION
     Dosage: 150 MG, QD, ORAL
     Route: 048

REACTIONS (1)
  - BLOOD CREATININE INCREASED [None]
